FAERS Safety Report 5392785-5 (Version None)
Quarter: 2007Q3

REPORT INFORMATION
  Report Type: 
  Country: None (occurrence: None)
  Receive Date: 20070720
  Receipt Date: 20070710
  Transmission Date: 20080115
  Serious: Yes (Other)
  Sender: FDA-Public Use
  Company Number: CA-PFIZER INC-2007047078

PATIENT
  Age: 80 Year
  Sex: Female

DRUGS (11)
  1. LYRICA [Suspect]
     Indication: NEURALGIA
     Dosage: DAILY DOSE:225MG
     Route: 048
  2. DETROL [Concomitant]
     Route: 048
  3. ALL OTHER THERAPEUTIC PRODUCTS [Concomitant]
     Route: 048
  4. AMITRIPTYLINE HCL [Concomitant]
     Route: 048
  5. ZOPICLONE [Concomitant]
     Route: 048
  6. CIMETIDINE HCL [Concomitant]
     Route: 048
  7. SYNTHROID [Concomitant]
     Route: 048
  8. CALCIUM CHLORIDE [Concomitant]
     Route: 048
  9. VITAMIN D [Concomitant]
     Route: 048
  10. ASCORBIC ACID [Concomitant]
     Route: 048
  11. OPHTHALMOLOGICALS [Concomitant]

REACTIONS (6)
  - BALANCE DISORDER [None]
  - FALL [None]
  - MUSCLE ATROPHY [None]
  - MUSCULAR WEAKNESS [None]
  - NEURALGIA [None]
  - URINARY INCONTINENCE [None]
